FAERS Safety Report 8024890-9 (Version None)
Quarter: 2012Q1

REPORT INFORMATION
  Report Type: 
  Country: None (occurrence: None)
  Receive Date: 20120105
  Receipt Date: 20111228
  Transmission Date: 20120608
  Serious: Yes (Disabling, Other)
  Sender: FDA-Public Use
  Company Number: PHHY2011FR86638

PATIENT
  Sex: Female
  Weight: 50 kg

DRUGS (13)
  1. NEORAL [Suspect]
     Dosage: 100 MG, BID
  2. PHENOXYMETHYL PENICILLIN [Concomitant]
     Dosage: UNK UKN, UNK
  3. MAGNESIUM [Concomitant]
     Dosage: UNK UKN, UNK
  4. FLUCONAZOLE [Concomitant]
     Dosage: UNK UKN, UNK
  5. PREDNISONE TAB [Concomitant]
     Dosage: 15 MG
  6. NEORAL [Suspect]
     Indication: BONE MARROW TRANSPLANT
     Dosage: 100 MG, BID (TWICE PER DAY)
     Dates: start: 20110617
  7. VALACYCLOVIR HYDROCHLORIDE [Concomitant]
     Dosage: UNK UKN, UNK
  8. SPECIAFOLDINE [Concomitant]
     Dosage: UNK UKN, UNK
  9. CHLORMADINONE ACETATE TAB [Concomitant]
     Dosage: UNK UKN, UNK
  10. ENTOCORT EC [Concomitant]
     Dosage: UNK UKN, UNK
  11. NEORAL [Suspect]
     Dosage: 75 MG, BID
  12. NEORAL [Suspect]
     Dosage: 50 MG, BID (TWICE PER DAY)
     Dates: start: 20110901
  13. BACTRIM [Concomitant]
     Dosage: UNK UKN, UNK

REACTIONS (11)
  - ANXIETY [None]
  - OBSESSIVE-COMPULSIVE DISORDER [None]
  - MEMORY IMPAIRMENT [None]
  - TREMOR [None]
  - DISTURBANCE IN ATTENTION [None]
  - BURNING SENSATION [None]
  - DIARRHOEA [None]
  - GRAFT VERSUS HOST DISEASE [None]
  - HYPERTENSION [None]
  - BLOOD CREATININE INCREASED [None]
  - CHILLS [None]
